FAERS Safety Report 8576764-2 (Version None)
Quarter: 2012Q3

REPORT INFORMATION
  Report Type: 
  Country: None (occurrence: None)
  Receive Date: 20120807
  Receipt Date: 19920316
  Transmission Date: 20120928
  Serious: Yes (Hospitalization)
  Sender: FDA-Public Use
  Company Number: US-ROCHE-1097771

PATIENT
  Age: 55 Year
  Sex: Male

DRUGS (1)
  1. ACTIVASE [Suspect]
     Indication: ACUTE MYOCARDIAL INFARCTION

REACTIONS (3)
  - BRADYCARDIA [None]
  - ARRHYTHMIA [None]
  - CHEST PAIN [None]
